FAERS Safety Report 25368740 (Version 1)
Quarter: 2025Q2

REPORT INFORMATION
  Report Type: Spontaneous
  Country: CA (occurrence: CA)
  Receive Date: 20250528
  Receipt Date: 20250528
  Transmission Date: 20250717
  Serious: Yes (Death, Life-Threatening, Hospitalization, Disabling, Other)
  Sender: MYLAN
  Company Number: CA-MYLANLABS-2025M1042057

PATIENT
  Age: 44 Year
  Sex: Female

DRUGS (508)
  1. CELEBREX [Suspect]
     Active Substance: CELECOXIB
     Indication: Arthritis
     Dosage: 1 DOSAGE FORM, QD (1 EVERY 1 DAYS)
  2. CELEBREX [Suspect]
     Active Substance: CELECOXIB
     Dosage: 1 DOSAGE FORM, QD (1 EVERY 1 DAYS)
     Route: 048
  3. CELEBREX [Suspect]
     Active Substance: CELECOXIB
     Dosage: 1 DOSAGE FORM, QD (1 EVERY 1 DAYS)
     Route: 048
  4. CELEBREX [Suspect]
     Active Substance: CELECOXIB
     Dosage: 1 DOSAGE FORM, QD (1 EVERY 1 DAYS)
  5. LYRICA [Suspect]
     Active Substance: PREGABALIN
     Indication: Product used for unknown indication
  6. LYRICA [Suspect]
     Active Substance: PREGABALIN
     Route: 065
  7. LYRICA [Suspect]
     Active Substance: PREGABALIN
     Route: 065
  8. LYRICA [Suspect]
     Active Substance: PREGABALIN
  9. ACETAMINOPHEN [Suspect]
     Active Substance: ACETAMINOPHEN
     Indication: Rheumatoid arthritis
  10. ACETAMINOPHEN [Suspect]
     Active Substance: ACETAMINOPHEN
     Route: 048
  11. ACETAMINOPHEN [Suspect]
     Active Substance: ACETAMINOPHEN
     Route: 048
  12. ACETAMINOPHEN [Suspect]
     Active Substance: ACETAMINOPHEN
  13. ACTEMRA [Suspect]
     Active Substance: TOCILIZUMAB
     Indication: Rheumatoid arthritis
     Route: 042
  14. ACTEMRA [Suspect]
     Active Substance: TOCILIZUMAB
  15. ACTEMRA [Suspect]
     Active Substance: TOCILIZUMAB
  16. ACTEMRA [Suspect]
     Active Substance: TOCILIZUMAB
     Route: 042
  17. ACTEMRA [Suspect]
     Active Substance: TOCILIZUMAB
     Route: 058
  18. ACTEMRA [Suspect]
     Active Substance: TOCILIZUMAB
  19. ACTEMRA [Suspect]
     Active Substance: TOCILIZUMAB
  20. ACTEMRA [Suspect]
     Active Substance: TOCILIZUMAB
     Route: 058
  21. ACTEMRA [Suspect]
     Active Substance: TOCILIZUMAB
  22. ACTEMRA [Suspect]
     Active Substance: TOCILIZUMAB
  23. ACTEMRA [Suspect]
     Active Substance: TOCILIZUMAB
     Route: 048
  24. ACTEMRA [Suspect]
     Active Substance: TOCILIZUMAB
     Route: 048
  25. ACTEMRA [Suspect]
     Active Substance: TOCILIZUMAB
     Dosage: 752 MILLIGRAM, QW (1 EVERY 1 WEEKS)
  26. ACTEMRA [Suspect]
     Active Substance: TOCILIZUMAB
     Dosage: 752 MILLIGRAM, QW (1 EVERY 1 WEEKS)
  27. ACTEMRA [Suspect]
     Active Substance: TOCILIZUMAB
     Dosage: 752 MILLIGRAM, QW (1 EVERY 1 WEEKS)
     Route: 042
  28. ACTEMRA [Suspect]
     Active Substance: TOCILIZUMAB
     Dosage: 752 MILLIGRAM, QW (1 EVERY 1 WEEKS)
     Route: 042
  29. ADALIMUMAB [Suspect]
     Active Substance: ADALIMUMAB
     Indication: Rheumatoid arthritis
  30. ADALIMUMAB [Suspect]
     Active Substance: ADALIMUMAB
     Route: 058
  31. ADALIMUMAB [Suspect]
     Active Substance: ADALIMUMAB
     Route: 058
  32. ADALIMUMAB [Suspect]
     Active Substance: ADALIMUMAB
  33. ALENDRONATE SODIUM [Suspect]
     Active Substance: ALENDRONATE SODIUM
     Indication: Rheumatoid arthritis
  34. ALENDRONATE SODIUM [Suspect]
     Active Substance: ALENDRONATE SODIUM
     Route: 048
  35. ALENDRONATE SODIUM [Suspect]
     Active Substance: ALENDRONATE SODIUM
     Route: 048
  36. ALENDRONATE SODIUM [Suspect]
     Active Substance: ALENDRONATE SODIUM
  37. DICLOFENAC SODIUM [Suspect]
     Active Substance: DICLOFENAC SODIUM
     Indication: Product used for unknown indication
  38. DICLOFENAC SODIUM [Suspect]
     Active Substance: DICLOFENAC SODIUM
     Route: 065
  39. DICLOFENAC SODIUM [Suspect]
     Active Substance: DICLOFENAC SODIUM
     Route: 065
  40. DICLOFENAC SODIUM [Suspect]
     Active Substance: DICLOFENAC SODIUM
  41. PREDNISONE [Suspect]
     Active Substance: PREDNISONE
     Indication: Rheumatoid arthritis
  42. PREDNISONE [Suspect]
     Active Substance: PREDNISONE
  43. PREDNISONE [Suspect]
     Active Substance: PREDNISONE
     Route: 065
  44. PREDNISONE [Suspect]
     Active Substance: PREDNISONE
     Route: 065
  45. PREDNISONE [Suspect]
     Active Substance: PREDNISONE
  46. PREDNISONE [Suspect]
     Active Substance: PREDNISONE
  47. PREDNISONE [Suspect]
     Active Substance: PREDNISONE
     Route: 048
  48. PREDNISONE [Suspect]
     Active Substance: PREDNISONE
     Route: 048
  49. APREPITANT [Suspect]
     Active Substance: APREPITANT
     Indication: Product used for unknown indication
  50. APREPITANT [Suspect]
     Active Substance: APREPITANT
  51. APREPITANT [Suspect]
     Active Substance: APREPITANT
     Route: 065
  52. APREPITANT [Suspect]
     Active Substance: APREPITANT
     Route: 065
  53. APREPITANT [Suspect]
     Active Substance: APREPITANT
  54. APREPITANT [Suspect]
     Active Substance: APREPITANT
  55. APREPITANT [Suspect]
     Active Substance: APREPITANT
     Route: 042
  56. APREPITANT [Suspect]
     Active Substance: APREPITANT
     Route: 042
  57. ARAVA [Suspect]
     Active Substance: LEFLUNOMIDE
     Indication: Rheumatoid arthritis
     Dosage: 20 MILLIGRAM, QD (1 EVERY 1 DAYS)
  58. ARAVA [Suspect]
     Active Substance: LEFLUNOMIDE
     Dosage: 20 MILLIGRAM, QD (1 EVERY 1 DAYS)
  59. ARAVA [Suspect]
     Active Substance: LEFLUNOMIDE
     Dosage: 20 MILLIGRAM, QD (1 EVERY 1 DAYS)
     Route: 048
  60. ARAVA [Suspect]
     Active Substance: LEFLUNOMIDE
     Dosage: 20 MILLIGRAM, QD (1 EVERY 1 DAYS)
     Route: 048
  61. ARAVA [Suspect]
     Active Substance: LEFLUNOMIDE
     Dosage: 2000 MILLIGRAM, QD (1 EVERY 1 DAYS)
  62. ARAVA [Suspect]
     Active Substance: LEFLUNOMIDE
     Dosage: 2000 MILLIGRAM, QD (1 EVERY 1 DAYS)
  63. ARAVA [Suspect]
     Active Substance: LEFLUNOMIDE
     Dosage: 2000 MILLIGRAM, QD (1 EVERY 1 DAYS)
     Route: 048
  64. ARAVA [Suspect]
     Active Substance: LEFLUNOMIDE
     Dosage: 2000 MILLIGRAM, QD (1 EVERY 1 DAYS)
     Route: 048
  65. CETIRIZINE [Suspect]
     Active Substance: CETIRIZINE HYDROCHLORIDE
     Indication: Rheumatoid arthritis
  66. CETIRIZINE [Suspect]
     Active Substance: CETIRIZINE HYDROCHLORIDE
     Route: 065
  67. CETIRIZINE [Suspect]
     Active Substance: CETIRIZINE HYDROCHLORIDE
     Route: 065
  68. CETIRIZINE [Suspect]
     Active Substance: CETIRIZINE HYDROCHLORIDE
  69. CETIRIZINE HYDROCHLORIDE [Suspect]
     Active Substance: CETIRIZINE HYDROCHLORIDE
     Indication: Rheumatoid arthritis
  70. CETIRIZINE HYDROCHLORIDE [Suspect]
     Active Substance: CETIRIZINE HYDROCHLORIDE
     Route: 065
  71. CETIRIZINE HYDROCHLORIDE [Suspect]
     Active Substance: CETIRIZINE HYDROCHLORIDE
     Route: 065
  72. CETIRIZINE HYDROCHLORIDE [Suspect]
     Active Substance: CETIRIZINE HYDROCHLORIDE
  73. CHLORAPREP [Suspect]
     Active Substance: CHLORHEXIDINE GLUCONATE\ISOPROPYL ALCOHOL
     Indication: Product used for unknown indication
  74. CHLORAPREP [Suspect]
     Active Substance: CHLORHEXIDINE GLUCONATE\ISOPROPYL ALCOHOL
     Route: 061
  75. CHLORAPREP [Suspect]
     Active Substance: CHLORHEXIDINE GLUCONATE\ISOPROPYL ALCOHOL
     Route: 061
  76. CHLORAPREP [Suspect]
     Active Substance: CHLORHEXIDINE GLUCONATE\ISOPROPYL ALCOHOL
  77. CHLORHEXIDINE [Suspect]
     Active Substance: CHLORHEXIDINE
     Indication: Product used for unknown indication
  78. CHLORHEXIDINE [Suspect]
     Active Substance: CHLORHEXIDINE
  79. CHLORHEXIDINE [Suspect]
     Active Substance: CHLORHEXIDINE
     Route: 061
  80. CHLORHEXIDINE [Suspect]
     Active Substance: CHLORHEXIDINE
     Route: 061
  81. CHLORHEXIDINE [Suspect]
     Active Substance: CHLORHEXIDINE
  82. CHLORHEXIDINE [Suspect]
     Active Substance: CHLORHEXIDINE
  83. CHLORHEXIDINE [Suspect]
     Active Substance: CHLORHEXIDINE
     Route: 002
  84. CHLORHEXIDINE [Suspect]
     Active Substance: CHLORHEXIDINE
     Route: 002
  85. CHLORHEXIDINE [Suspect]
     Active Substance: CHLORHEXIDINE
  86. CHLORHEXIDINE [Suspect]
     Active Substance: CHLORHEXIDINE
     Route: 048
  87. CHLORHEXIDINE [Suspect]
     Active Substance: CHLORHEXIDINE
  88. CHLORHEXIDINE [Suspect]
     Active Substance: CHLORHEXIDINE
     Route: 048
  89. CHLORHEXIDINE GLUCONATE\ISOPROPYL ALCOHOL [Suspect]
     Active Substance: CHLORHEXIDINE GLUCONATE\ISOPROPYL ALCOHOL
     Indication: Product used for unknown indication
  90. CHLORHEXIDINE GLUCONATE\ISOPROPYL ALCOHOL [Suspect]
     Active Substance: CHLORHEXIDINE GLUCONATE\ISOPROPYL ALCOHOL
     Route: 002
  91. CHLORHEXIDINE GLUCONATE\ISOPROPYL ALCOHOL [Suspect]
     Active Substance: CHLORHEXIDINE GLUCONATE\ISOPROPYL ALCOHOL
     Route: 002
  92. CHLORHEXIDINE GLUCONATE\ISOPROPYL ALCOHOL [Suspect]
     Active Substance: CHLORHEXIDINE GLUCONATE\ISOPROPYL ALCOHOL
  93. CIMZIA [Suspect]
     Active Substance: CERTOLIZUMAB PEGOL
     Indication: Rheumatoid arthritis
  94. CIMZIA [Suspect]
     Active Substance: CERTOLIZUMAB PEGOL
  95. CIMZIA [Suspect]
     Active Substance: CERTOLIZUMAB PEGOL
     Route: 042
  96. CIMZIA [Suspect]
     Active Substance: CERTOLIZUMAB PEGOL
     Route: 042
  97. CIMZIA [Suspect]
     Active Substance: CERTOLIZUMAB PEGOL
  98. CIMZIA [Suspect]
     Active Substance: CERTOLIZUMAB PEGOL
  99. CIMZIA [Suspect]
     Active Substance: CERTOLIZUMAB PEGOL
     Route: 058
  100. CIMZIA [Suspect]
     Active Substance: CERTOLIZUMAB PEGOL
     Route: 058
  101. CHOLECALCIFEROL [Suspect]
     Active Substance: CHOLECALCIFEROL
     Indication: Product used for unknown indication
  102. CHOLECALCIFEROL [Suspect]
     Active Substance: CHOLECALCIFEROL
     Route: 016
  103. CHOLECALCIFEROL [Suspect]
     Active Substance: CHOLECALCIFEROL
     Route: 016
  104. CHOLECALCIFEROL [Suspect]
     Active Substance: CHOLECALCIFEROL
  105. CORTISONE [Suspect]
     Active Substance: CORTISONE
     Indication: Rheumatoid arthritis
  106. CORTISONE [Suspect]
     Active Substance: CORTISONE
  107. CORTISONE [Suspect]
     Active Substance: CORTISONE
     Route: 048
  108. CORTISONE [Suspect]
     Active Substance: CORTISONE
     Route: 048
  109. CORTISONE [Suspect]
     Active Substance: CORTISONE
  110. CORTISONE [Suspect]
     Active Substance: CORTISONE
  111. CORTISONE [Suspect]
     Active Substance: CORTISONE
     Route: 061
  112. CORTISONE [Suspect]
     Active Substance: CORTISONE
     Route: 061
  113. CORTISONE ACETATE [Suspect]
     Active Substance: CORTISONE ACETATE
     Indication: Rheumatoid arthritis
  114. CORTISONE ACETATE [Suspect]
     Active Substance: CORTISONE ACETATE
     Route: 061
  115. CORTISONE ACETATE [Suspect]
     Active Substance: CORTISONE ACETATE
     Route: 061
  116. CORTISONE ACETATE [Suspect]
     Active Substance: CORTISONE ACETATE
  117. COSENTYX [Suspect]
     Active Substance: SECUKINUMAB
     Indication: Rheumatoid arthritis
  118. COSENTYX [Suspect]
     Active Substance: SECUKINUMAB
     Indication: Psoriatic arthropathy
  119. COSENTYX [Suspect]
     Active Substance: SECUKINUMAB
     Route: 065
  120. COSENTYX [Suspect]
     Active Substance: SECUKINUMAB
     Route: 065
  121. COSENTYX [Suspect]
     Active Substance: SECUKINUMAB
  122. COSENTYX [Suspect]
     Active Substance: SECUKINUMAB
  123. COSENTYX [Suspect]
     Active Substance: SECUKINUMAB
     Route: 005
  124. COSENTYX [Suspect]
     Active Substance: SECUKINUMAB
     Route: 005
  125. DESOXIMETASONE [Suspect]
     Active Substance: DESOXIMETASONE
     Indication: Rheumatoid arthritis
  126. DESOXIMETASONE [Suspect]
     Active Substance: DESOXIMETASONE
  127. DESOXIMETASONE [Suspect]
     Active Substance: DESOXIMETASONE
     Route: 065
  128. DESOXIMETASONE [Suspect]
     Active Substance: DESOXIMETASONE
     Route: 065
  129. DESOXIMETASONE [Suspect]
     Active Substance: DESOXIMETASONE
     Route: 048
  130. DESOXIMETASONE [Suspect]
     Active Substance: DESOXIMETASONE
     Route: 048
  131. DESOXIMETASONE [Suspect]
     Active Substance: DESOXIMETASONE
  132. DESOXIMETASONE [Suspect]
     Active Substance: DESOXIMETASONE
  133. DESOXIMETASONE [Suspect]
     Active Substance: DESOXIMETASONE
     Route: 058
  134. DESOXIMETASONE [Suspect]
     Active Substance: DESOXIMETASONE
     Route: 058
  135. DESOXIMETASONE [Suspect]
     Active Substance: DESOXIMETASONE
  136. DESOXIMETASONE [Suspect]
     Active Substance: DESOXIMETASONE
  137. DESOXIMETASONE [Suspect]
     Active Substance: DESOXIMETASONE
     Route: 003
  138. DESOXIMETASONE [Suspect]
     Active Substance: DESOXIMETASONE
  139. DESOXIMETASONE [Suspect]
     Active Substance: DESOXIMETASONE
  140. DESOXIMETASONE [Suspect]
     Active Substance: DESOXIMETASONE
     Route: 003
  141. DESOXIMETASONE [Suspect]
     Active Substance: DESOXIMETASONE
     Route: 061
  142. DESOXIMETASONE [Suspect]
     Active Substance: DESOXIMETASONE
  143. DESOXIMETASONE [Suspect]
     Active Substance: DESOXIMETASONE
  144. DESOXIMETASONE [Suspect]
     Active Substance: DESOXIMETASONE
     Route: 061
  145. DESOXIMETASONE [Suspect]
     Active Substance: DESOXIMETASONE
     Route: 042
  146. DESOXIMETASONE [Suspect]
     Active Substance: DESOXIMETASONE
     Route: 042
  147. DESOXIMETASONE [Suspect]
     Active Substance: DESOXIMETASONE
  148. DESOXIMETASONE [Suspect]
     Active Substance: DESOXIMETASONE
  149. DESOXIMETASONE [Suspect]
     Active Substance: DESOXIMETASONE
     Dosage: 25 MILLIGRAM, QW (1 EVERY 1 WEEK)
     Route: 048
  150. DESOXIMETASONE [Suspect]
     Active Substance: DESOXIMETASONE
     Dosage: 25 MILLIGRAM, QW (1 EVERY 1 WEEK)
     Route: 048
  151. DESOXIMETASONE [Suspect]
     Active Substance: DESOXIMETASONE
     Dosage: 25 MILLIGRAM, QW (1 EVERY 1 WEEK)
  152. DESOXIMETASONE [Suspect]
     Active Substance: DESOXIMETASONE
     Dosage: 25 MILLIGRAM, QW (1 EVERY 1 WEEK)
  153. DESOXIMETASONE [Suspect]
     Active Substance: DESOXIMETASONE
     Dosage: 25 MILLIGRAM, QW (1 EVERY 1 WEEK)
     Route: 042
  154. DESOXIMETASONE [Suspect]
     Active Substance: DESOXIMETASONE
     Dosage: 25 MILLIGRAM, QW (1 EVERY 1 WEEK)
  155. DESOXIMETASONE [Suspect]
     Active Substance: DESOXIMETASONE
     Dosage: 25 MILLIGRAM, QW (1 EVERY 1 WEEK)
  156. DESOXIMETASONE [Suspect]
     Active Substance: DESOXIMETASONE
     Dosage: 25 MILLIGRAM, QW (1 EVERY 1 WEEK)
     Route: 042
  157. DICLOFENAC SODIUM [Suspect]
     Active Substance: DICLOFENAC SODIUM
     Indication: Rheumatoid arthritis
  158. DICLOFENAC SODIUM [Suspect]
     Active Substance: DICLOFENAC SODIUM
  159. DICLOFENAC SODIUM [Suspect]
     Active Substance: DICLOFENAC SODIUM
     Route: 065
  160. DICLOFENAC SODIUM [Suspect]
     Active Substance: DICLOFENAC SODIUM
     Route: 065
  161. DICLOFENAC SODIUM [Suspect]
     Active Substance: DICLOFENAC SODIUM
  162. DICLOFENAC SODIUM [Suspect]
     Active Substance: DICLOFENAC SODIUM
  163. DICLOFENAC SODIUM [Suspect]
     Active Substance: DICLOFENAC SODIUM
     Route: 048
  164. DICLOFENAC SODIUM [Suspect]
     Active Substance: DICLOFENAC SODIUM
     Route: 048
  165. DILTIAZEM [Suspect]
     Active Substance: DILTIAZEM
     Indication: Product used for unknown indication
  166. DILTIAZEM [Suspect]
     Active Substance: DILTIAZEM
     Route: 065
  167. DILTIAZEM [Suspect]
     Active Substance: DILTIAZEM
     Route: 065
  168. DILTIAZEM [Suspect]
     Active Substance: DILTIAZEM
  169. DOXYCYCLINE HYCLATE [Suspect]
     Active Substance: DOXYCYCLINE HYCLATE
     Indication: Product used for unknown indication
  170. DOXYCYCLINE HYCLATE [Suspect]
     Active Substance: DOXYCYCLINE HYCLATE
     Route: 065
  171. DOXYCYCLINE HYCLATE [Suspect]
     Active Substance: DOXYCYCLINE HYCLATE
     Route: 065
  172. DOXYCYCLINE HYCLATE [Suspect]
     Active Substance: DOXYCYCLINE HYCLATE
  173. ENBREL [Suspect]
     Active Substance: ETANERCEPT
     Indication: Rheumatoid arthritis
     Dosage: 20 MILLIGRAM, QW (1 EEVRY 1 WEEK)
  174. ENBREL [Suspect]
     Active Substance: ETANERCEPT
     Indication: Psoriatic arthropathy
     Dosage: 20 MILLIGRAM, QW (1 EEVRY 1 WEEK)
  175. ENBREL [Suspect]
     Active Substance: ETANERCEPT
     Dosage: 20 MILLIGRAM, QW (1 EEVRY 1 WEEK)
     Route: 058
  176. ENBREL [Suspect]
     Active Substance: ETANERCEPT
     Dosage: 20 MILLIGRAM, QW (1 EEVRY 1 WEEK)
     Route: 058
  177. ENBREL [Suspect]
     Active Substance: ETANERCEPT
  178. ENBREL [Suspect]
     Active Substance: ETANERCEPT
  179. ENBREL [Suspect]
     Active Substance: ETANERCEPT
     Route: 065
  180. ENBREL [Suspect]
     Active Substance: ETANERCEPT
     Route: 065
  181. ENBREL [Suspect]
     Active Substance: ETANERCEPT
  182. ENBREL [Suspect]
     Active Substance: ETANERCEPT
     Route: 058
  183. ENBREL [Suspect]
     Active Substance: ETANERCEPT
  184. ENBREL [Suspect]
     Active Substance: ETANERCEPT
     Route: 058
  185. ERELZI [Suspect]
     Active Substance: ETANERCEPT-SZZS
     Indication: Rheumatoid arthritis
  186. ERELZI [Suspect]
     Active Substance: ETANERCEPT-SZZS
  187. ERELZI [Suspect]
     Active Substance: ETANERCEPT-SZZS
     Route: 065
  188. ERELZI [Suspect]
     Active Substance: ETANERCEPT-SZZS
     Route: 065
  189. ERELZI [Suspect]
     Active Substance: ETANERCEPT-SZZS
     Dosage: 50 MILLIGRAM, QW (1 EVERY 1 WEEKS)
  190. ERELZI [Suspect]
     Active Substance: ETANERCEPT-SZZS
     Dosage: 50 MILLIGRAM, QW (1 EVERY 1 WEEKS)
  191. ERELZI [Suspect]
     Active Substance: ETANERCEPT-SZZS
     Dosage: 50 MILLIGRAM, QW (1 EVERY 1 WEEKS)
     Route: 065
  192. ERELZI [Suspect]
     Active Substance: ETANERCEPT-SZZS
     Dosage: 50 MILLIGRAM, QW (1 EVERY 1 WEEKS)
     Route: 065
  193. FLUMETHASONE PIVALATE [Suspect]
     Active Substance: FLUMETHASONE PIVALATE
     Indication: Rheumatoid arthritis
  194. FLUMETHASONE PIVALATE [Suspect]
     Active Substance: FLUMETHASONE PIVALATE
     Route: 003
  195. FLUMETHASONE PIVALATE [Suspect]
     Active Substance: FLUMETHASONE PIVALATE
     Route: 003
  196. FLUMETHASONE PIVALATE [Suspect]
     Active Substance: FLUMETHASONE PIVALATE
  197. FOLIC ACID [Suspect]
     Active Substance: FOLIC ACID
     Indication: Rheumatoid arthritis
  198. FOLIC ACID [Suspect]
     Active Substance: FOLIC ACID
  199. FOLIC ACID [Suspect]
     Active Substance: FOLIC ACID
     Route: 065
  200. FOLIC ACID [Suspect]
     Active Substance: FOLIC ACID
     Route: 065
  201. FOLIC ACID [Suspect]
     Active Substance: FOLIC ACID
  202. FOLIC ACID [Suspect]
     Active Substance: FOLIC ACID
  203. FOLIC ACID [Suspect]
     Active Substance: FOLIC ACID
     Route: 058
  204. FOLIC ACID [Suspect]
     Active Substance: FOLIC ACID
     Route: 058
  205. FOSAMAX [Suspect]
     Active Substance: ALENDRONATE SODIUM
     Indication: Rheumatoid arthritis
  206. FOSAMAX [Suspect]
     Active Substance: ALENDRONATE SODIUM
     Route: 048
  207. FOSAMAX [Suspect]
     Active Substance: ALENDRONATE SODIUM
     Route: 048
  208. FOSAMAX [Suspect]
     Active Substance: ALENDRONATE SODIUM
  209. HUMIRA [Suspect]
     Active Substance: ADALIMUMAB
     Indication: Rheumatoid arthritis
  210. HUMIRA [Suspect]
     Active Substance: ADALIMUMAB
  211. HUMIRA [Suspect]
     Active Substance: ADALIMUMAB
     Route: 058
  212. HUMIRA [Suspect]
     Active Substance: ADALIMUMAB
     Route: 058
  213. HUMIRA [Suspect]
     Active Substance: ADALIMUMAB
  214. HUMIRA [Suspect]
     Active Substance: ADALIMUMAB
  215. HUMIRA [Suspect]
     Active Substance: ADALIMUMAB
     Route: 057
  216. HUMIRA [Suspect]
     Active Substance: ADALIMUMAB
     Route: 057
  217. HYDROXYCHLOROQUINE [Suspect]
     Active Substance: HYDROXYCHLOROQUINE
     Indication: Rheumatoid arthritis
     Route: 065
  218. HYDROXYCHLOROQUINE [Suspect]
     Active Substance: HYDROXYCHLOROQUINE
  219. HYDROXYCHLOROQUINE [Suspect]
     Active Substance: HYDROXYCHLOROQUINE
  220. HYDROXYCHLOROQUINE [Suspect]
     Active Substance: HYDROXYCHLOROQUINE
     Route: 065
  221. HYDROXYCHLOROQUINE [Suspect]
     Active Substance: HYDROXYCHLOROQUINE
     Route: 048
  222. HYDROXYCHLOROQUINE [Suspect]
     Active Substance: HYDROXYCHLOROQUINE
  223. HYDROXYCHLOROQUINE [Suspect]
     Active Substance: HYDROXYCHLOROQUINE
  224. HYDROXYCHLOROQUINE [Suspect]
     Active Substance: HYDROXYCHLOROQUINE
     Route: 048
  225. HYDROXYCHLOROQUINE [Suspect]
     Active Substance: HYDROXYCHLOROQUINE
     Dosage: 200 MILLIGRAM, BID (2 EVERY 1 DAYS)
     Route: 065
  226. HYDROXYCHLOROQUINE [Suspect]
     Active Substance: HYDROXYCHLOROQUINE
     Dosage: 200 MILLIGRAM, BID (2 EVERY 1 DAYS)
     Route: 065
  227. HYDROXYCHLOROQUINE [Suspect]
     Active Substance: HYDROXYCHLOROQUINE
     Dosage: 200 MILLIGRAM, BID (2 EVERY 1 DAYS)
  228. HYDROXYCHLOROQUINE [Suspect]
     Active Substance: HYDROXYCHLOROQUINE
     Dosage: 200 MILLIGRAM, BID (2 EVERY 1 DAYS)
  229. INFLIXIMAB [Suspect]
     Active Substance: INFLIXIMAB
     Indication: Rheumatoid arthritis
  230. INFLIXIMAB [Suspect]
     Active Substance: INFLIXIMAB
     Route: 042
  231. INFLIXIMAB [Suspect]
     Active Substance: INFLIXIMAB
     Route: 042
  232. INFLIXIMAB [Suspect]
     Active Substance: INFLIXIMAB
  233. ISOPROPYL ALCOHOL [Suspect]
     Active Substance: ISOPROPYL ALCOHOL
     Indication: Product used for unknown indication
  234. ISOPROPYL ALCOHOL [Suspect]
     Active Substance: ISOPROPYL ALCOHOL
     Route: 061
  235. ISOPROPYL ALCOHOL [Suspect]
     Active Substance: ISOPROPYL ALCOHOL
     Route: 061
  236. ISOPROPYL ALCOHOL [Suspect]
     Active Substance: ISOPROPYL ALCOHOL
  237. LEFLUNOMIDE [Suspect]
     Active Substance: LEFLUNOMIDE
     Indication: Rheumatoid arthritis
  238. LEFLUNOMIDE [Suspect]
     Active Substance: LEFLUNOMIDE
     Route: 048
  239. LEFLUNOMIDE [Suspect]
     Active Substance: LEFLUNOMIDE
     Route: 048
  240. LEFLUNOMIDE [Suspect]
     Active Substance: LEFLUNOMIDE
  241. METHOTREXATE [Suspect]
     Active Substance: METHOTREXATE
     Indication: Rheumatoid arthritis
     Dosage: 20 MILLIGRAM, QW (1 EVERY 1 WEEK)
     Route: 048
  242. METHOTREXATE [Suspect]
     Active Substance: METHOTREXATE
     Dosage: 20 MILLIGRAM, QW (1 EVERY 1 WEEK)
  243. METHOTREXATE [Suspect]
     Active Substance: METHOTREXATE
     Dosage: 20 MILLIGRAM, QW (1 EVERY 1 WEEK)
  244. METHOTREXATE [Suspect]
     Active Substance: METHOTREXATE
     Dosage: 20 MILLIGRAM, QW (1 EVERY 1 WEEK)
     Route: 048
  245. METHOTREXATE [Suspect]
     Active Substance: METHOTREXATE
     Route: 048
  246. METHOTREXATE [Suspect]
     Active Substance: METHOTREXATE
  247. METHOTREXATE [Suspect]
     Active Substance: METHOTREXATE
  248. METHOTREXATE [Suspect]
     Active Substance: METHOTREXATE
     Route: 048
  249. METHOTREXATE [Suspect]
     Active Substance: METHOTREXATE
  250. METHOTREXATE [Suspect]
     Active Substance: METHOTREXATE
  251. METHOTREXATE [Suspect]
     Active Substance: METHOTREXATE
     Route: 013
  252. METHOTREXATE [Suspect]
     Active Substance: METHOTREXATE
     Route: 013
  253. METHOTREXATE [Suspect]
     Active Substance: METHOTREXATE
     Dosage: 20 MILLIGRAM, QD (1 EVERY 1 DAYS)
  254. METHOTREXATE [Suspect]
     Active Substance: METHOTREXATE
     Dosage: 20 MILLIGRAM, QD (1 EVERY 1 DAYS)
  255. METHOTREXATE [Suspect]
     Active Substance: METHOTREXATE
     Dosage: 20 MILLIGRAM, QD (1 EVERY 1 DAYS)
     Route: 058
  256. METHOTREXATE [Suspect]
     Active Substance: METHOTREXATE
     Dosage: 20 MILLIGRAM, QD (1 EVERY 1 DAYS)
     Route: 058
  257. MYCOPHENOLATE MOFETIL [Suspect]
     Active Substance: MYCOPHENOLATE MOFETIL
     Indication: Product used for unknown indication
  258. MYCOPHENOLATE MOFETIL [Suspect]
     Active Substance: MYCOPHENOLATE MOFETIL
     Route: 065
  259. MYCOPHENOLATE MOFETIL [Suspect]
     Active Substance: MYCOPHENOLATE MOFETIL
     Route: 065
  260. MYCOPHENOLATE MOFETIL [Suspect]
     Active Substance: MYCOPHENOLATE MOFETIL
  261. NAPROXEN SODIUM [Suspect]
     Active Substance: NAPROXEN SODIUM
     Indication: Rheumatoid arthritis
     Dosage: 500 MILLIGRAM, BID (2 EVERY 1 DAY)
  262. NAPROXEN SODIUM [Suspect]
     Active Substance: NAPROXEN SODIUM
     Dosage: 500 MILLIGRAM, BID (2 EVERY 1 DAY)
     Route: 065
  263. NAPROXEN SODIUM [Suspect]
     Active Substance: NAPROXEN SODIUM
     Dosage: 500 MILLIGRAM, BID (2 EVERY 1 DAY)
     Route: 065
  264. NAPROXEN SODIUM [Suspect]
     Active Substance: NAPROXEN SODIUM
     Dosage: 500 MILLIGRAM, BID (2 EVERY 1 DAY)
  265. ORENCIA [Suspect]
     Active Substance: ABATACEPT
     Indication: Rheumatoid arthritis
     Dosage: 17.857 MILLIGRAM, QD (1 EVERY 1 DAY)
  266. ORENCIA [Suspect]
     Active Substance: ABATACEPT
     Dosage: 17.857 MILLIGRAM, QD (1 EVERY 1 DAY)
  267. ORENCIA [Suspect]
     Active Substance: ABATACEPT
     Dosage: 17.857 MILLIGRAM, QD (1 EVERY 1 DAY)
     Route: 042
  268. ORENCIA [Suspect]
     Active Substance: ABATACEPT
     Dosage: 17.857 MILLIGRAM, QD (1 EVERY 1 DAY)
     Route: 042
  269. ORENCIA [Suspect]
     Active Substance: ABATACEPT
     Dosage: 125 MILLIGRAM, QW (1 EVERY 1 WEEK)
  270. ORENCIA [Suspect]
     Active Substance: ABATACEPT
     Dosage: 125 MILLIGRAM, QW (1 EVERY 1 WEEK)
  271. ORENCIA [Suspect]
     Active Substance: ABATACEPT
     Dosage: 125 MILLIGRAM, QW (1 EVERY 1 WEEK)
     Route: 042
  272. ORENCIA [Suspect]
     Active Substance: ABATACEPT
     Dosage: 125 MILLIGRAM, QW (1 EVERY 1 WEEK)
     Route: 042
  273. ORENCIA [Suspect]
     Active Substance: ABATACEPT
  274. ORENCIA [Suspect]
     Active Substance: ABATACEPT
  275. ORENCIA [Suspect]
     Active Substance: ABATACEPT
     Route: 015
  276. ORENCIA [Suspect]
     Active Substance: ABATACEPT
     Route: 015
  277. ORENCIA [Suspect]
     Active Substance: ABATACEPT
     Dosage: 120 MILLIGRAM, QW (1 EVERY 1 WEEK)
  278. ORENCIA [Suspect]
     Active Substance: ABATACEPT
     Dosage: 120 MILLIGRAM, QW (1 EVERY 1 WEEK)
  279. ORENCIA [Suspect]
     Active Substance: ABATACEPT
     Dosage: 120 MILLIGRAM, QW (1 EVERY 1 WEEK)
     Route: 058
  280. ORENCIA [Suspect]
     Active Substance: ABATACEPT
     Dosage: 120 MILLIGRAM, QW (1 EVERY 1 WEEK)
     Route: 058
  281. ORENCIA [Suspect]
     Active Substance: ABATACEPT
     Dosage: 18 MILLIGRAM, QD (1 EVERY 1 DAYS)
  282. ORENCIA [Suspect]
     Active Substance: ABATACEPT
     Dosage: 18 MILLIGRAM, QD (1 EVERY 1 DAYS)
     Route: 058
  283. ORENCIA [Suspect]
     Active Substance: ABATACEPT
     Dosage: 18 MILLIGRAM, QD (1 EVERY 1 DAYS)
  284. ORENCIA [Suspect]
     Active Substance: ABATACEPT
     Dosage: 18 MILLIGRAM, QD (1 EVERY 1 DAYS)
     Route: 058
  285. OTEZLA [Suspect]
     Active Substance: APREMILAST
     Indication: Product used for unknown indication
     Dosage: 3 MILLIGRAM, BID (2 EVERY 1 DAYS)
  286. OTEZLA [Suspect]
     Active Substance: APREMILAST
     Dosage: 3 MILLIGRAM, BID (2 EVERY 1 DAYS)
     Route: 048
  287. OTEZLA [Suspect]
     Active Substance: APREMILAST
     Dosage: 3 MILLIGRAM, BID (2 EVERY 1 DAYS)
     Route: 048
  288. OTEZLA [Suspect]
     Active Substance: APREMILAST
     Dosage: 3 MILLIGRAM, BID (2 EVERY 1 DAYS)
  289. OXYCODONE [Suspect]
     Active Substance: OXYCODONE
     Indication: Product used for unknown indication
     Dosage: 3 MILLIGRAM, BID (2 EVERY 1 DAY)
  290. OXYCODONE [Suspect]
     Active Substance: OXYCODONE
     Dosage: 3 MILLIGRAM, BID (2 EVERY 1 DAY)
  291. OXYCODONE [Suspect]
     Active Substance: OXYCODONE
     Dosage: 3 MILLIGRAM, BID (2 EVERY 1 DAY)
     Route: 065
  292. OXYCODONE [Suspect]
     Active Substance: OXYCODONE
     Dosage: 3 MILLIGRAM, BID (2 EVERY 1 DAY)
     Route: 065
  293. OXYCODONE [Suspect]
     Active Substance: OXYCODONE
  294. OXYCODONE [Suspect]
     Active Substance: OXYCODONE
  295. OXYCODONE [Suspect]
     Active Substance: OXYCODONE
     Route: 042
  296. OXYCODONE [Suspect]
     Active Substance: OXYCODONE
     Route: 042
  297. PANTOPRAZOLE [Suspect]
     Active Substance: PANTOPRAZOLE
     Indication: Product used for unknown indication
  298. PANTOPRAZOLE [Suspect]
     Active Substance: PANTOPRAZOLE
     Route: 016
  299. PANTOPRAZOLE [Suspect]
     Active Substance: PANTOPRAZOLE
     Route: 016
  300. PANTOPRAZOLE [Suspect]
     Active Substance: PANTOPRAZOLE
  301. PHTHALYLSULFATHIAZOLE [Suspect]
     Active Substance: PHTHALYLSULFATHIAZOLE
     Indication: Rheumatoid arthritis
  302. PHTHALYLSULFATHIAZOLE [Suspect]
     Active Substance: PHTHALYLSULFATHIAZOLE
  303. PHTHALYLSULFATHIAZOLE [Suspect]
     Active Substance: PHTHALYLSULFATHIAZOLE
     Route: 065
  304. PHTHALYLSULFATHIAZOLE [Suspect]
     Active Substance: PHTHALYLSULFATHIAZOLE
     Route: 065
  305. PHTHALYLSULFATHIAZOLE [Suspect]
     Active Substance: PHTHALYLSULFATHIAZOLE
  306. PHTHALYLSULFATHIAZOLE [Suspect]
     Active Substance: PHTHALYLSULFATHIAZOLE
  307. PHTHALYLSULFATHIAZOLE [Suspect]
     Active Substance: PHTHALYLSULFATHIAZOLE
     Route: 048
  308. PHTHALYLSULFATHIAZOLE [Suspect]
     Active Substance: PHTHALYLSULFATHIAZOLE
     Route: 048
  309. PHTHALYLSULFATHIAZOLE [Suspect]
     Active Substance: PHTHALYLSULFATHIAZOLE
     Dosage: 2000 MILLIGRAM, QD (1 EVERY 1 DAYS)
  310. PHTHALYLSULFATHIAZOLE [Suspect]
     Active Substance: PHTHALYLSULFATHIAZOLE
     Dosage: 2000 MILLIGRAM, QD (1 EVERY 1 DAYS)
     Route: 048
  311. PHTHALYLSULFATHIAZOLE [Suspect]
     Active Substance: PHTHALYLSULFATHIAZOLE
     Dosage: 2000 MILLIGRAM, QD (1 EVERY 1 DAYS)
  312. PHTHALYLSULFATHIAZOLE [Suspect]
     Active Substance: PHTHALYLSULFATHIAZOLE
     Dosage: 2000 MILLIGRAM, QD (1 EVERY 1 DAYS)
     Route: 048
  313. PREDNISONE [Suspect]
     Active Substance: PREDNISONE
     Indication: Rheumatoid arthritis
  314. PREDNISONE [Suspect]
     Active Substance: PREDNISONE
     Route: 048
  315. PREDNISONE [Suspect]
     Active Substance: PREDNISONE
     Route: 048
  316. PREDNISONE [Suspect]
     Active Substance: PREDNISONE
  317. PSEUDOEPHEDRINE [Suspect]
     Active Substance: PSEUDOEPHEDRINE
     Indication: Sinusitis
  318. PSEUDOEPHEDRINE [Suspect]
     Active Substance: PSEUDOEPHEDRINE
     Route: 048
  319. PSEUDOEPHEDRINE [Suspect]
     Active Substance: PSEUDOEPHEDRINE
     Route: 048
  320. PSEUDOEPHEDRINE [Suspect]
     Active Substance: PSEUDOEPHEDRINE
  321. PSEUDOEPHEDRINE [Suspect]
     Active Substance: PSEUDOEPHEDRINE
     Indication: Rheumatoid arthritis
     Dosage: 10 MILLIGRAM, QW (1 EVERY 1 WEEK)
  322. PSEUDOEPHEDRINE [Suspect]
     Active Substance: PSEUDOEPHEDRINE
     Dosage: 10 MILLIGRAM, QW (1 EVERY 1 WEEK)
     Route: 065
  323. PSEUDOEPHEDRINE [Suspect]
     Active Substance: PSEUDOEPHEDRINE
     Dosage: 10 MILLIGRAM, QW (1 EVERY 1 WEEK)
     Route: 065
  324. PSEUDOEPHEDRINE [Suspect]
     Active Substance: PSEUDOEPHEDRINE
     Dosage: 10 MILLIGRAM, QW (1 EVERY 1 WEEK)
  325. RAMIPRIL [Suspect]
     Active Substance: RAMIPRIL
     Indication: Product used for unknown indication
  326. RAMIPRIL [Suspect]
     Active Substance: RAMIPRIL
     Route: 065
  327. RAMIPRIL [Suspect]
     Active Substance: RAMIPRIL
     Route: 065
  328. RAMIPRIL [Suspect]
     Active Substance: RAMIPRIL
  329. REMICADE [Suspect]
     Active Substance: INFLIXIMAB
     Indication: Rheumatoid arthritis
  330. REMICADE [Suspect]
     Active Substance: INFLIXIMAB
     Route: 042
  331. REMICADE [Suspect]
     Active Substance: INFLIXIMAB
     Route: 042
  332. REMICADE [Suspect]
     Active Substance: INFLIXIMAB
  333. RITUXIMAB [Suspect]
     Active Substance: RITUXIMAB
     Indication: Rheumatoid arthritis
  334. RITUXIMAB [Suspect]
     Active Substance: RITUXIMAB
     Route: 042
  335. RITUXIMAB [Suspect]
     Active Substance: RITUXIMAB
     Route: 042
  336. RITUXIMAB [Suspect]
     Active Substance: RITUXIMAB
  337. DIETARY SUPPLEMENT\HERBALS [Suspect]
     Active Substance: DIETARY SUPPLEMENT\HERBALS
     Indication: Product used for unknown indication
  338. DIETARY SUPPLEMENT\HERBALS [Suspect]
     Active Substance: DIETARY SUPPLEMENT\HERBALS
     Route: 048
  339. DIETARY SUPPLEMENT\HERBALS [Suspect]
     Active Substance: DIETARY SUPPLEMENT\HERBALS
     Route: 048
  340. DIETARY SUPPLEMENT\HERBALS [Suspect]
     Active Substance: DIETARY SUPPLEMENT\HERBALS
  341. SIMPONI [Suspect]
     Active Substance: GOLIMUMAB
     Indication: Rheumatoid arthritis
  342. SIMPONI [Suspect]
     Active Substance: GOLIMUMAB
     Route: 058
  343. SIMPONI [Suspect]
     Active Substance: GOLIMUMAB
     Route: 058
  344. SIMPONI [Suspect]
     Active Substance: GOLIMUMAB
  345. STELARA [Suspect]
     Active Substance: USTEKINUMAB
     Indication: Rheumatoid arthritis
  346. STELARA [Suspect]
     Active Substance: USTEKINUMAB
  347. STELARA [Suspect]
     Active Substance: USTEKINUMAB
     Route: 058
  348. STELARA [Suspect]
     Active Substance: USTEKINUMAB
     Route: 058
  349. STELARA [Suspect]
     Active Substance: USTEKINUMAB
  350. STELARA [Suspect]
     Active Substance: USTEKINUMAB
  351. STELARA [Suspect]
     Active Substance: USTEKINUMAB
     Route: 065
  352. STELARA [Suspect]
     Active Substance: USTEKINUMAB
     Route: 065
  353. SULFAMETHOXAZOLE\TRIMETHOPRIM [Suspect]
     Active Substance: SULFAMETHOXAZOLE\TRIMETHOPRIM
     Indication: Product used for unknown indication
  354. SULFAMETHOXAZOLE\TRIMETHOPRIM [Suspect]
     Active Substance: SULFAMETHOXAZOLE\TRIMETHOPRIM
     Route: 065
  355. SULFAMETHOXAZOLE\TRIMETHOPRIM [Suspect]
     Active Substance: SULFAMETHOXAZOLE\TRIMETHOPRIM
     Route: 065
  356. SULFAMETHOXAZOLE\TRIMETHOPRIM [Suspect]
     Active Substance: SULFAMETHOXAZOLE\TRIMETHOPRIM
  357. SULFASALAZINE [Suspect]
     Active Substance: SULFASALAZINE
     Indication: Rheumatoid arthritis
     Dosage: 1000 MILLIGRAM, BID (2 EVERY 1 DAYS)
     Route: 065
  358. SULFASALAZINE [Suspect]
     Active Substance: SULFASALAZINE
     Dosage: 1000 MILLIGRAM, BID (2 EVERY 1 DAYS)
  359. SULFASALAZINE [Suspect]
     Active Substance: SULFASALAZINE
     Dosage: 1000 MILLIGRAM, BID (2 EVERY 1 DAYS)
  360. SULFASALAZINE [Suspect]
     Active Substance: SULFASALAZINE
     Dosage: 1000 MILLIGRAM, BID (2 EVERY 1 DAYS)
     Route: 065
  361. SULFASALAZINE [Suspect]
     Active Substance: SULFASALAZINE
     Dosage: 3400 MILLIGRAM, QW (1 EVERY 1 WEEK)
     Route: 065
  362. SULFASALAZINE [Suspect]
     Active Substance: SULFASALAZINE
     Dosage: 3400 MILLIGRAM, QW (1 EVERY 1 WEEK)
  363. SULFASALAZINE [Suspect]
     Active Substance: SULFASALAZINE
     Dosage: 3400 MILLIGRAM, QW (1 EVERY 1 WEEK)
  364. SULFASALAZINE [Suspect]
     Active Substance: SULFASALAZINE
     Dosage: 3400 MILLIGRAM, QW (1 EVERY 1 WEEK)
     Route: 065
  365. SULFASALAZINE [Suspect]
     Active Substance: SULFASALAZINE
     Dosage: 500 MILLIGRAM, BID (2 EVERY 1 DAYS)
  366. SULFASALAZINE [Suspect]
     Active Substance: SULFASALAZINE
     Dosage: 500 MILLIGRAM, BID (2 EVERY 1 DAYS)
  367. SULFASALAZINE [Suspect]
     Active Substance: SULFASALAZINE
     Dosage: 500 MILLIGRAM, BID (2 EVERY 1 DAYS)
     Route: 048
  368. SULFASALAZINE [Suspect]
     Active Substance: SULFASALAZINE
     Dosage: 500 MILLIGRAM, BID (2 EVERY 1 DAYS)
     Route: 048
  369. SULFASALAZINE [Suspect]
     Active Substance: SULFASALAZINE
  370. SULFASALAZINE [Suspect]
     Active Substance: SULFASALAZINE
  371. SULFASALAZINE [Suspect]
     Active Substance: SULFASALAZINE
     Route: 048
  372. SULFASALAZINE [Suspect]
     Active Substance: SULFASALAZINE
     Route: 048
  373. TRAMADOL HYDROCHLORIDE [Suspect]
     Active Substance: TRAMADOL HYDROCHLORIDE
     Indication: Product used for unknown indication
  374. TRAMADOL HYDROCHLORIDE [Suspect]
     Active Substance: TRAMADOL HYDROCHLORIDE
     Route: 065
  375. TRAMADOL HYDROCHLORIDE [Suspect]
     Active Substance: TRAMADOL HYDROCHLORIDE
     Route: 065
  376. TRAMADOL HYDROCHLORIDE [Suspect]
     Active Substance: TRAMADOL HYDROCHLORIDE
  377. TRIAMCINOLONE ACETONIDE [Suspect]
     Active Substance: TRIAMCINOLONE ACETONIDE
     Indication: Rheumatoid arthritis
  378. TRIAMCINOLONE ACETONIDE [Suspect]
     Active Substance: TRIAMCINOLONE ACETONIDE
     Route: 014
  379. TRIAMCINOLONE ACETONIDE [Suspect]
     Active Substance: TRIAMCINOLONE ACETONIDE
     Route: 014
  380. TRIAMCINOLONE ACETONIDE [Suspect]
     Active Substance: TRIAMCINOLONE ACETONIDE
  381. PREDNISONE [Suspect]
     Active Substance: PREDNISONE
     Indication: Rheumatoid arthritis
  382. PREDNISONE [Suspect]
     Active Substance: PREDNISONE
     Route: 048
  383. PREDNISONE [Suspect]
     Active Substance: PREDNISONE
     Route: 048
  384. PREDNISONE [Suspect]
     Active Substance: PREDNISONE
  385. XELJANZ [Suspect]
     Active Substance: TOFACITINIB CITRATE
     Indication: Rheumatoid arthritis
  386. XELJANZ [Suspect]
     Active Substance: TOFACITINIB CITRATE
  387. XELJANZ [Suspect]
     Active Substance: TOFACITINIB CITRATE
     Route: 065
  388. XELJANZ [Suspect]
     Active Substance: TOFACITINIB CITRATE
     Route: 065
  389. XELJANZ [Suspect]
     Active Substance: TOFACITINIB CITRATE
     Dosage: 5 MILLIGRAM, BID (2 EVERY 1 DAYS)
  390. XELJANZ [Suspect]
     Active Substance: TOFACITINIB CITRATE
     Dosage: 5 MILLIGRAM, BID (2 EVERY 1 DAYS)
  391. XELJANZ [Suspect]
     Active Substance: TOFACITINIB CITRATE
     Dosage: 5 MILLIGRAM, BID (2 EVERY 1 DAYS)
     Route: 065
  392. XELJANZ [Suspect]
     Active Substance: TOFACITINIB CITRATE
     Dosage: 5 MILLIGRAM, BID (2 EVERY 1 DAYS)
     Route: 065
  393. ACETAMINOPHEN\CODEINE PHOSPHATE [Concomitant]
     Active Substance: ACETAMINOPHEN\CODEINE PHOSPHATE
     Indication: Product used for unknown indication
  394. ACETAMINOPHEN\CODEINE PHOSPHATE [Concomitant]
     Active Substance: ACETAMINOPHEN\CODEINE PHOSPHATE
     Route: 065
  395. ACETAMINOPHEN\CODEINE PHOSPHATE [Concomitant]
     Active Substance: ACETAMINOPHEN\CODEINE PHOSPHATE
     Route: 065
  396. ACETAMINOPHEN\CODEINE PHOSPHATE [Concomitant]
     Active Substance: ACETAMINOPHEN\CODEINE PHOSPHATE
  397. ACETAMINOPHEN\CODEINE PHOSPHATE [Concomitant]
     Active Substance: ACETAMINOPHEN\CODEINE PHOSPHATE
     Indication: Product used for unknown indication
  398. ACETAMINOPHEN\CODEINE PHOSPHATE [Concomitant]
     Active Substance: ACETAMINOPHEN\CODEINE PHOSPHATE
     Route: 065
  399. ACETAMINOPHEN\CODEINE PHOSPHATE [Concomitant]
     Active Substance: ACETAMINOPHEN\CODEINE PHOSPHATE
     Route: 065
  400. ACETAMINOPHEN\CODEINE PHOSPHATE [Concomitant]
     Active Substance: ACETAMINOPHEN\CODEINE PHOSPHATE
  401. ATIVAN [Concomitant]
     Active Substance: LORAZEPAM
     Indication: Product used for unknown indication
  402. ATIVAN [Concomitant]
     Active Substance: LORAZEPAM
     Route: 065
  403. ATIVAN [Concomitant]
     Active Substance: LORAZEPAM
     Route: 065
  404. ATIVAN [Concomitant]
     Active Substance: LORAZEPAM
  405. CAFFEINE [Concomitant]
     Active Substance: CAFFEINE
     Indication: Product used for unknown indication
  406. CAFFEINE [Concomitant]
     Active Substance: CAFFEINE
     Route: 065
  407. CAFFEINE [Concomitant]
     Active Substance: CAFFEINE
     Route: 065
  408. CAFFEINE [Concomitant]
     Active Substance: CAFFEINE
  409. CODEINE [Concomitant]
     Active Substance: CODEINE
     Indication: Product used for unknown indication
  410. CODEINE [Concomitant]
     Active Substance: CODEINE
     Route: 065
  411. CODEINE [Concomitant]
     Active Substance: CODEINE
     Route: 065
  412. CODEINE [Concomitant]
     Active Substance: CODEINE
  413. DESOGESTREL\ETHINYL ESTRADIOL [Concomitant]
     Active Substance: DESOGESTREL\ETHINYL ESTRADIOL
     Indication: Product used for unknown indication
  414. DESOGESTREL\ETHINYL ESTRADIOL [Concomitant]
     Active Substance: DESOGESTREL\ETHINYL ESTRADIOL
     Route: 065
  415. DESOGESTREL\ETHINYL ESTRADIOL [Concomitant]
     Active Substance: DESOGESTREL\ETHINYL ESTRADIOL
     Route: 065
  416. DESOGESTREL\ETHINYL ESTRADIOL [Concomitant]
     Active Substance: DESOGESTREL\ETHINYL ESTRADIOL
  417. DEXAMETHASONE [Concomitant]
     Active Substance: DEXAMETHASONE
     Indication: Product used for unknown indication
  418. DEXAMETHASONE [Concomitant]
     Active Substance: DEXAMETHASONE
     Route: 065
  419. DEXAMETHASONE [Concomitant]
     Active Substance: DEXAMETHASONE
     Route: 065
  420. DEXAMETHASONE [Concomitant]
     Active Substance: DEXAMETHASONE
  421. ERGOCALCIFEROL [Concomitant]
     Active Substance: ERGOCALCIFEROL
     Indication: Product used for unknown indication
  422. ERGOCALCIFEROL [Concomitant]
     Active Substance: ERGOCALCIFEROL
     Route: 065
  423. ERGOCALCIFEROL [Concomitant]
     Active Substance: ERGOCALCIFEROL
     Route: 065
  424. ERGOCALCIFEROL [Concomitant]
     Active Substance: ERGOCALCIFEROL
  425. ERYTHROMYCIN [Concomitant]
     Active Substance: ERYTHROMYCIN
     Indication: Product used for unknown indication
  426. ERYTHROMYCIN [Concomitant]
     Active Substance: ERYTHROMYCIN
     Route: 065
  427. ERYTHROMYCIN [Concomitant]
     Active Substance: ERYTHROMYCIN
     Route: 065
  428. ERYTHROMYCIN [Concomitant]
     Active Substance: ERYTHROMYCIN
  429. GLUCOSAMINE [Concomitant]
     Active Substance: GLUCOSAMINE
     Indication: Product used for unknown indication
  430. GLUCOSAMINE [Concomitant]
     Active Substance: GLUCOSAMINE
     Route: 065
  431. GLUCOSAMINE [Concomitant]
     Active Substance: GLUCOSAMINE
     Route: 065
  432. GLUCOSAMINE [Concomitant]
     Active Substance: GLUCOSAMINE
  433. IBUPROFEN [Concomitant]
     Active Substance: IBUPROFEN
     Indication: Product used for unknown indication
  434. IBUPROFEN [Concomitant]
     Active Substance: IBUPROFEN
     Route: 065
  435. IBUPROFEN [Concomitant]
     Active Substance: IBUPROFEN
     Route: 065
  436. IBUPROFEN [Concomitant]
     Active Substance: IBUPROFEN
  437. LANSOPRAZOLE [Concomitant]
     Active Substance: LANSOPRAZOLE
     Indication: Product used for unknown indication
  438. LANSOPRAZOLE [Concomitant]
     Active Substance: LANSOPRAZOLE
     Route: 065
  439. LANSOPRAZOLE [Concomitant]
     Active Substance: LANSOPRAZOLE
     Route: 065
  440. LANSOPRAZOLE [Concomitant]
     Active Substance: LANSOPRAZOLE
  441. LEVOTHYROXINE SODIUM [Concomitant]
     Active Substance: LEVOTHYROXINE SODIUM
     Indication: Product used for unknown indication
  442. LEVOTHYROXINE SODIUM [Concomitant]
     Active Substance: LEVOTHYROXINE SODIUM
     Route: 065
  443. LEVOTHYROXINE SODIUM [Concomitant]
     Active Substance: LEVOTHYROXINE SODIUM
     Route: 065
  444. LEVOTHYROXINE SODIUM [Concomitant]
     Active Substance: LEVOTHYROXINE SODIUM
  445. LISINOPRIL [Concomitant]
     Active Substance: LISINOPRIL
     Indication: Product used for unknown indication
  446. LISINOPRIL [Concomitant]
     Active Substance: LISINOPRIL
     Route: 065
  447. LISINOPRIL [Concomitant]
     Active Substance: LISINOPRIL
     Route: 065
  448. LISINOPRIL [Concomitant]
     Active Substance: LISINOPRIL
  449. LORAZEPAM [Concomitant]
     Active Substance: LORAZEPAM
     Indication: Product used for unknown indication
  450. LORAZEPAM [Concomitant]
     Active Substance: LORAZEPAM
     Route: 065
  451. LORAZEPAM [Concomitant]
     Active Substance: LORAZEPAM
     Route: 065
  452. LORAZEPAM [Concomitant]
     Active Substance: LORAZEPAM
  453. MAGNESIUM [Concomitant]
     Active Substance: MAGNESIUM
     Indication: Product used for unknown indication
  454. MAGNESIUM [Concomitant]
     Active Substance: MAGNESIUM
     Route: 065
  455. MAGNESIUM [Concomitant]
     Active Substance: MAGNESIUM
     Route: 065
  456. MAGNESIUM [Concomitant]
     Active Substance: MAGNESIUM
  457. MELOXICAM [Concomitant]
     Active Substance: MELOXICAM
     Indication: Product used for unknown indication
  458. MELOXICAM [Concomitant]
     Active Substance: MELOXICAM
     Route: 065
  459. MELOXICAM [Concomitant]
     Active Substance: MELOXICAM
     Route: 065
  460. MELOXICAM [Concomitant]
     Active Substance: MELOXICAM
  461. MORPHINE [Concomitant]
     Active Substance: MORPHINE
     Indication: Product used for unknown indication
  462. MORPHINE [Concomitant]
     Active Substance: MORPHINE
     Route: 065
  463. MORPHINE [Concomitant]
     Active Substance: MORPHINE
     Route: 065
  464. MORPHINE [Concomitant]
     Active Substance: MORPHINE
  465. PIROXICAM [Concomitant]
     Active Substance: PIROXICAM
     Indication: Product used for unknown indication
  466. PIROXICAM [Concomitant]
     Active Substance: PIROXICAM
     Route: 065
  467. PIROXICAM [Concomitant]
     Active Substance: PIROXICAM
     Route: 065
  468. PIROXICAM [Concomitant]
     Active Substance: PIROXICAM
  469. PREDNISOLONE [Concomitant]
     Active Substance: PREDNISOLONE
     Indication: Product used for unknown indication
  470. PREDNISOLONE [Concomitant]
     Active Substance: PREDNISOLONE
     Route: 065
  471. PREDNISOLONE [Concomitant]
     Active Substance: PREDNISOLONE
     Route: 065
  472. PREDNISOLONE [Concomitant]
     Active Substance: PREDNISOLONE
  473. QUETIAPINE FUMARATE [Concomitant]
     Active Substance: QUETIAPINE FUMARATE
     Indication: Product used for unknown indication
  474. QUETIAPINE FUMARATE [Concomitant]
     Active Substance: QUETIAPINE FUMARATE
     Route: 065
  475. QUETIAPINE FUMARATE [Concomitant]
     Active Substance: QUETIAPINE FUMARATE
     Route: 065
  476. QUETIAPINE FUMARATE [Concomitant]
     Active Substance: QUETIAPINE FUMARATE
  477. RISEDRONATE SODIUM [Concomitant]
     Active Substance: RISEDRONATE SODIUM
     Indication: Product used for unknown indication
  478. RISEDRONATE SODIUM [Concomitant]
     Active Substance: RISEDRONATE SODIUM
     Route: 065
  479. RISEDRONATE SODIUM [Concomitant]
     Active Substance: RISEDRONATE SODIUM
     Route: 065
  480. RISEDRONATE SODIUM [Concomitant]
     Active Substance: RISEDRONATE SODIUM
  481. ALBUTEROL [Concomitant]
     Active Substance: ALBUTEROL
     Indication: Product used for unknown indication
  482. ALBUTEROL [Concomitant]
     Active Substance: ALBUTEROL
     Route: 065
  483. ALBUTEROL [Concomitant]
     Active Substance: ALBUTEROL
     Route: 065
  484. ALBUTEROL [Concomitant]
     Active Substance: ALBUTEROL
  485. SULFASALAZINE [Concomitant]
     Active Substance: SULFASALAZINE
     Indication: Product used for unknown indication
  486. SULFASALAZINE [Concomitant]
     Active Substance: SULFASALAZINE
     Route: 065
  487. SULFASALAZINE [Concomitant]
     Active Substance: SULFASALAZINE
     Route: 065
  488. SULFASALAZINE [Concomitant]
     Active Substance: SULFASALAZINE
  489. FISH OIL [Concomitant]
     Active Substance: FISH OIL
     Indication: Product used for unknown indication
  490. FISH OIL [Concomitant]
     Active Substance: FISH OIL
     Route: 065
  491. FISH OIL [Concomitant]
     Active Substance: FISH OIL
     Route: 065
  492. FISH OIL [Concomitant]
     Active Substance: FISH OIL
  493. TYLENOL [Concomitant]
     Active Substance: ACETAMINOPHEN
     Indication: Product used for unknown indication
  494. TYLENOL [Concomitant]
     Active Substance: ACETAMINOPHEN
     Route: 065
  495. TYLENOL [Concomitant]
     Active Substance: ACETAMINOPHEN
     Route: 065
  496. TYLENOL [Concomitant]
     Active Substance: ACETAMINOPHEN
  497. VITAMIN C [Concomitant]
     Active Substance: ASCORBIC ACID
     Indication: Product used for unknown indication
  498. VITAMIN C [Concomitant]
     Active Substance: ASCORBIC ACID
     Route: 065
  499. VITAMIN C [Concomitant]
     Active Substance: ASCORBIC ACID
     Route: 065
  500. VITAMIN C [Concomitant]
     Active Substance: ASCORBIC ACID
  501. ZESTRIL [Concomitant]
     Active Substance: LISINOPRIL
     Indication: Product used for unknown indication
  502. ZESTRIL [Concomitant]
     Active Substance: LISINOPRIL
     Route: 065
  503. ZESTRIL [Concomitant]
     Active Substance: LISINOPRIL
     Route: 065
  504. ZESTRIL [Concomitant]
     Active Substance: LISINOPRIL
  505. ZOPICLONE [Concomitant]
     Active Substance: ZOPICLONE
     Indication: Product used for unknown indication
  506. ZOPICLONE [Concomitant]
     Active Substance: ZOPICLONE
     Route: 065
  507. ZOPICLONE [Concomitant]
     Active Substance: ZOPICLONE
     Route: 065
  508. ZOPICLONE [Concomitant]
     Active Substance: ZOPICLONE

REACTIONS (28)
  - Pain in extremity [Fatal]
  - Dizziness [Fatal]
  - Abdominal pain upper [Fatal]
  - Anti-cyclic citrullinated peptide antibody positive [Fatal]
  - Breast cancer stage III [Fatal]
  - Bursitis [Fatal]
  - C-reactive protein abnormal [Fatal]
  - Confusional state [Fatal]
  - Exposure during pregnancy [Fatal]
  - General physical health deterioration [Fatal]
  - Insomnia [Fatal]
  - Joint range of motion decreased [Fatal]
  - Live birth [Fatal]
  - Memory impairment [Fatal]
  - Mobility decreased [Fatal]
  - Nausea [Fatal]
  - Oedema [Fatal]
  - Oedema peripheral [Fatal]
  - Pregnancy [Fatal]
  - Pneumonia [Fatal]
  - Pulmonary fibrosis [Fatal]
  - Rheumatoid factor positive [Fatal]
  - Road traffic accident [Fatal]
  - Sleep disorder [Fatal]
  - Thrombocytopenia [Fatal]
  - Wheezing [Fatal]
  - Vomiting [Fatal]
  - Diarrhoea [Fatal]
